FAERS Safety Report 8843848 (Version 2)
Quarter: 2013Q1

REPORT INFORMATION
  Report Type: Spontaneous
  Country: US (occurrence: US)
  Receive Date: 20121016
  Receipt Date: 20130117
  Transmission Date: 20140127
  Serious: No
  Sender: FDA-Public Use
  Company Number: US-PFIZER INC-2012254980

PATIENT
  Age: 65 Year
  Sex: Female
  Weight: 65.76 kg

DRUGS (2)
  1. EFFEXOR XR [Suspect]
     Dosage: 150 MG, 1X/DAY
     Route: 048
     Dates: start: 201204, end: 2012
  2. BUSPAR [Concomitant]
     Dosage: UNK

REACTIONS (6)
  - Hypertension [Unknown]
  - Rash erythematous [Unknown]
  - Malaise [Unknown]
  - Vomiting [Unknown]
  - Oropharyngeal pain [Unknown]
  - Cough [Unknown]
